FAERS Safety Report 20954065 (Version 1)
Quarter: 2022Q2

REPORT INFORMATION
  Report Type: Spontaneous
  Country: US (occurrence: US)
  Receive Date: 20220614
  Receipt Date: 20220614
  Transmission Date: 20220721
  Serious: No
  Sender: FDA-Public Use
  Company Number: US-AMGEN-USASP2022095403

PATIENT
  Sex: Male

DRUGS (1)
  1. REPATHA [Suspect]
     Active Substance: EVOLOCUMAB
     Indication: Product used for unknown indication
     Dosage: 120 MILLIGRAM, Q2WK
     Route: 058
     Dates: start: 2020

REACTIONS (2)
  - Myopathy [Not Recovered/Not Resolved]
  - Off label use [Unknown]
